FAERS Safety Report 17074721 (Version 1)
Quarter: 2019Q4

REPORT INFORMATION
  Report Type: Spontaneous
  Country: US (occurrence: US)
  Receive Date: 20191126
  Receipt Date: 20191126
  Transmission Date: 20200122
  Serious: No
  Sender: FDA-Public Use
  Company Number: US-UNITED THERAPEUTICS-UNT-2019-019713

PATIENT
  Age: 57 Year
  Sex: Female

DRUGS (1)
  1. TYVASO [Suspect]
     Active Substance: TREPROSTINIL
     Indication: PULMONARY ARTERIAL HYPERTENSION
     Dosage: 18 ?G, QID
     Dates: start: 20191119

REACTIONS (4)
  - Cough [Unknown]
  - Nausea [Unknown]
  - Dyspnoea [Unknown]
  - Throat irritation [Unknown]

NARRATIVE: CASE EVENT DATE: 201911
